FAERS Safety Report 4753262-5 (Version None)
Quarter: 2005Q3

REPORT INFORMATION
  Report Type: 
  Country: None (occurrence: None)
  Receive Date: 20050826
  Receipt Date: 20050701
  Transmission Date: 20060218
  Serious: Yes (Other)
  Sender: FDA-Public Use
  Company Number: PHNU2005DE02437

PATIENT
  Sex: Male
  Weight: 94 kg

DRUGS (9)
  1. ZOMETA [Suspect]
     Indication: MULTIPLE MYELOMA
     Dosage: 4 MG, QMO
     Route: 042
     Dates: start: 20020101
  2. SALINE [Concomitant]
     Dosage: 100 ML, QMO
     Route: 042
     Dates: start: 20020101
  3. MELPHALAN [Concomitant]
     Dosage: 200 MG, UNK
     Route: 065
     Dates: start: 20050101
  4. DOXORUBICIN [Concomitant]
     Indication: HAEMATOPOIETIC STEM CELL MOBILISATION
     Route: 065
  5. DEXAMETHASONE [Concomitant]
     Indication: HAEMATOPOIETIC STEM CELL MOBILISATION
     Route: 065
  6. ENDOXAN [Concomitant]
     Indication: HAEMATOPOIETIC STEM CELL MOBILISATION
     Route: 065
  7. RADIOTHERAPY [Concomitant]
     Indication: MALIGNANT MELANOMA
     Route: 065
     Dates: start: 20040601
  8. AUTOLOGOUS TRANSPLANTATION [Concomitant]
     Dosage: PBSCT
     Dates: start: 20050101, end: 20050101
  9. AUTOLOGOUS TRANSPLANTATION [Concomitant]
     Dosage: PBSCT
     Dates: start: 20050501, end: 20050501

REACTIONS (4)
  - BONE DISORDER [None]
  - FISTULA [None]
  - OSTEOLYSIS [None]
  - PAIN IN JAW [None]
